FAERS Safety Report 4586757-8 (Version None)
Quarter: 2005Q1

REPORT INFORMATION
  Report Type: 
  Country: None (occurrence: None)
  Receive Date: 20050214
  Receipt Date: 20050131
  Transmission Date: 20050727
  Serious: Yes (Death, Other)
  Sender: FDA-Public Use
  Company Number: 2005022778

PATIENT
  Weight: 72.5755 kg

DRUGS (3)
  1. ZOLOFT [Suspect]
     Indication: DEPRESSION
     Dates: start: 20000101
  2. NEURONTIN [Suspect]
     Indication: BIPOLAR DISORDER
     Dates: start: 20000101
  3. LEVOTHYROXINE SODIUM [Concomitant]

REACTIONS (2)
  - COMPLETED SUICIDE [None]
  - SUICIDAL IDEATION [None]
